FAERS Safety Report 10041790 (Version 2)
Quarter: 2014Q2

REPORT INFORMATION
  Report Type: Spontaneous
  Country: US (occurrence: US)
  Receive Date: 20140327
  Receipt Date: 20140418
  Transmission Date: 20141212
  Serious: Yes (Other)
  Sender: FDA-Public Use
  Company Number: US-JNJFOC-20140313643

PATIENT
  Age: 81 Year
  Sex: Male
  Weight: 79.38 kg

DRUGS (13)
  1. XARELTO [Suspect]
     Indication: CEREBROVASCULAR ACCIDENT PROPHYLAXIS
     Route: 048
     Dates: start: 201307
  2. XARELTO [Suspect]
     Indication: ATRIAL FIBRILLATION
     Route: 048
     Dates: start: 201307
  3. METOPROLOL [Concomitant]
     Indication: ATRIAL FIBRILLATION
     Route: 048
     Dates: start: 201307
  4. SIMVASTATIN [Concomitant]
     Indication: BLOOD CHOLESTEROL INCREASED
     Route: 048
  5. COMBIGAN [Concomitant]
     Indication: GLAUCOMA
     Dosage: STANDARD DOSE
     Route: 031
     Dates: start: 2012
  6. DORZOLAMIDE [Concomitant]
     Indication: GLAUCOMA
     Dosage: STANDARD DOSE
     Route: 031
     Dates: start: 2013
  7. VITAMIN C [Concomitant]
     Route: 065
  8. VITAMIN D [Concomitant]
     Route: 065
  9. MAGNESIUM [Concomitant]
     Route: 065
  10. CALCIUM [Concomitant]
     Route: 065
  11. OMEGA 3 [Concomitant]
     Route: 065
  12. GLUCOSAMINE [Concomitant]
     Route: 065
  13. CHONDROITIN [Concomitant]
     Route: 065

REACTIONS (3)
  - Superficial injury of eye [Not Recovered/Not Resolved]
  - Hair growth abnormal [Not Recovered/Not Resolved]
  - Inappropriate schedule of drug administration [Not Recovered/Not Resolved]
